FAERS Safety Report 13818716 (Version 2)
Quarter: 2018Q1

REPORT INFORMATION
  Report Type: Report from Study
  Country: US (occurrence: US)
  Receive Date: 20170731
  Receipt Date: 20180201
  Transmission Date: 20180508
  Serious: No
  Sender: FDA-Public Use
  Company Number: US-EXELIXIS-CABO-17008593

PATIENT
  Sex: Male

DRUGS (11)
  1. LEVOTHYROXIN [Concomitant]
     Active Substance: LEVOTHYROXINE
  2. ATENOLOL. [Concomitant]
     Active Substance: ATENOLOL
  3. GEMFIBROZIL. [Concomitant]
     Active Substance: GEMFIBROZIL
  4. HYDRALAZINE [Concomitant]
     Active Substance: HYDRALAZINE HYDROCHLORIDE
  5. NOVAREL [Concomitant]
     Active Substance: CHORIOGONADOTROPIN ALFA
  6. OMEGA 3 [Concomitant]
     Active Substance: OMEGA-3 FATTY ACIDS
  7. WARFARIN [Concomitant]
     Active Substance: WARFARIN
  8. VALSARTAN. [Concomitant]
     Active Substance: VALSARTAN
  9. CITALOPRAM [Concomitant]
     Active Substance: CITALOPRAM HYDROBROMIDE
  10. TOUJEO [Concomitant]
     Active Substance: INSULIN GLARGINE
  11. CABOMETYX [Suspect]
     Active Substance: CABOZANTINIB S-MALATE
     Indication: RENAL CANCER
     Dosage: 60 MG, QD
     Route: 048
     Dates: start: 20161203

REACTIONS (2)
  - Oral disorder [Unknown]
  - Palmar-plantar erythrodysaesthesia syndrome [Unknown]
